FAERS Safety Report 6370750-9 (Version None)
Quarter: 2009Q3

REPORT INFORMATION
  Report Type: 
  Country: None (occurrence: None)
  Receive Date: 20090923
  Receipt Date: 20071212
  Transmission Date: 20100115
  Serious: Yes (Other)
  Sender: FDA-Public Use
  Company Number: US-ASTRAZENECA-2006UW26129

PATIENT
  Age: 15542 Day
  Sex: Female
  Weight: 149.2 kg

DRUGS (21)
  1. SEROQUEL [Suspect]
     Indication: INSOMNIA
     Route: 048
  2. SEROQUEL [Suspect]
     Indication: DEPRESSION
     Route: 048
  3. SEROQUEL [Suspect]
     Dosage: 300 TO 600 MG AT NIGHT
     Route: 048
     Dates: start: 20050713
  4. SEROQUEL [Suspect]
     Dosage: 300 TO 600 MG AT NIGHT
     Route: 048
     Dates: start: 20050713
  5. ESTRADIOL [Concomitant]
     Dates: start: 20050713
  6. KLONOPIN [Concomitant]
     Dosage: 1 TO 6 MG DAILY
     Route: 048
     Dates: start: 20050818
  7. CYMBALTA [Concomitant]
     Dates: start: 20050818
  8. DIAZEPAM [Concomitant]
     Indication: ANXIETY
     Dosage: 5 TO 30 MG
     Dates: start: 20050810
  9. NOVOLIN R [Concomitant]
     Dosage: 10 TO 40 UNITS
     Route: 058
     Dates: start: 20051130
  10. DILANTIN [Concomitant]
     Dosage: 500 TO 550 MG AT NIGHT
     Route: 048
     Dates: start: 20051130
  11. PROTONIX [Concomitant]
     Route: 048
     Dates: start: 20051130
  12. DELTASONE [Concomitant]
     Dosage: 60 MG THREE TABLETS AT NIGHT
     Route: 048
     Dates: start: 20051202
  13. GLUCOPHAGE [Concomitant]
     Route: 048
     Dates: start: 20051202
  14. LANTUS [Concomitant]
     Dosage: 10 UNITS DAILY
     Route: 058
     Dates: start: 20051204
  15. ABILIFY [Concomitant]
     Route: 048
     Dates: start: 20070209
  16. GLIPIZIDE [Concomitant]
     Route: 048
     Dates: start: 20070505
  17. METHADONE [Concomitant]
     Dosage: 40 TO 200 MG
     Route: 048
     Dates: start: 20070505
  18. LISINOPRIL [Concomitant]
     Route: 048
     Dates: start: 20070505
  19. NEURONTIN [Concomitant]
     Route: 048
     Dates: start: 20070505
  20. ACTOS [Concomitant]
     Route: 048
     Dates: start: 20070505
  21. NOVOLOG [Concomitant]
     Dosage: 10 UNITS / 0.1 ML
     Route: 058
     Dates: start: 20070505

REACTIONS (4)
  - DIABETES MELLITUS [None]
  - DIABETES MELLITUS INADEQUATE CONTROL [None]
  - GLUCOSE TOLERANCE IMPAIRED [None]
  - TYPE 1 DIABETES MELLITUS [None]
